FAERS Safety Report 4353433-6 (Version None)
Quarter: 2004Q2

REPORT INFORMATION
  Report Type: 
  Country: None (occurrence: None)
  Receive Date: 20040428
  Receipt Date: 20040420
  Transmission Date: 20050107
  Serious: Yes (Other)
  Sender: FDA-Public Use
  Company Number: 200409024

PATIENT
  Age: 59 Year
  Sex: Male

DRUGS (1)
  1. ALBUMINAR-5 [Suspect]
     Indication: CORONARY ARTERY SURGERY
     Dosage: 250 ML DAILY IV
     Route: 042
     Dates: start: 20040408

REACTIONS (10)
  - ANAPHYLACTOID REACTION [None]
  - BLOOD PRESSURE DECREASED [None]
  - CAPILLARY PERMEABILITY INCREASED [None]
  - FLUSHING [None]
  - GENERALISED OEDEMA [None]
  - HYPOVOLAEMIA [None]
  - OPERATIVE HAEMORRHAGE [None]
  - OXYGEN SATURATION DECREASED [None]
  - PROCEDURAL HYPOTENSION [None]
  - PULMONARY CONGESTION [None]
